FAERS Safety Report 9563905 (Version 1)
Quarter: 2013Q3

REPORT INFORMATION
  Report Type: Spontaneous
  Country: US (occurrence: US)
  Receive Date: 20130927
  Receipt Date: 20130927
  Transmission Date: 20140515
  Serious: Yes (Hospitalization)
  Sender: FDA-Public Use
  Company Number: US-009507513-1309USA011172

PATIENT
  Age: 14 Year
  Sex: Female

DRUGS (7)
  1. SINGULAIR [Suspect]
     Dosage: 10 MG, QD
     Route: 048
     Dates: start: 20120630
  2. CLOBETASOL PROPIONATE [Concomitant]
     Indication: PSORIASIS
     Dosage: UNK
     Dates: start: 20110701
  3. ADALIMUMAB [Concomitant]
     Indication: PSORIASIS
     Dosage: 40 MG, QW
     Route: 058
     Dates: start: 20120215, end: 20130515
  4. ALBUTEROL SULFATE [Concomitant]
     Dosage: 90 MICROGRAM INHALER AS NEEDED
     Route: 055
     Dates: start: 20120630
  5. AMITIZA [Concomitant]
     Dosage: 24 MICROGRAM, QD
     Route: 048
     Dates: start: 20120630
  6. PRILOSEC [Concomitant]
     Dosage: 20 MG, QD
     Route: 048
     Dates: start: 20120630
  7. COLACE [Concomitant]
     Dosage: 100 MG, QD
     Route: 048
     Dates: start: 20120630

REACTIONS (13)
  - Pyrexia [Recovered/Resolved]
  - Diarrhoea [Recovered/Resolved]
  - Cough [Recovered/Resolved]
  - Abdominal pain lower [Recovered/Resolved]
  - Inflammatory bowel disease [Recovered/Resolved]
  - Psoriasis [Recovered/Resolved]
  - Crohn^s disease [Recovered/Resolved]
  - Influenza [Recovered/Resolved]
  - Crohn^s disease [Recovered/Resolved]
  - Crohn^s disease [Recovered/Resolved]
  - Interstitial lung disease [Recovered/Resolved]
  - Crohn^s disease [Unknown]
  - Interstitial lung disease [Unknown]
